FAERS Safety Report 19421117 (Version 2)
Quarter: 2021Q3

REPORT INFORMATION
  Report Type: Spontaneous
  Country: US (occurrence: US)
  Receive Date: 20210615
  Receipt Date: 20210713
  Transmission Date: 20211014
  Serious: No
  Sender: FDA-Public Use
  Company Number: US-PFIZER INC-2021649878

PATIENT
  Age: 71 Year
  Sex: Female
  Weight: 75.98 kg

DRUGS (2)
  1. BRAFTOVI [Suspect]
     Active Substance: ENCORAFENIB
     Indication: HAIRY CELL LEUKAEMIA
     Dosage: 300 MG
     Route: 048
  2. BRAFTOVI [Suspect]
     Active Substance: ENCORAFENIB
     Dosage: 75 MG, 2X/WEEK
     Route: 048
     Dates: start: 20210515, end: 20210524

REACTIONS (2)
  - Hypersensitivity [Recovered/Resolved]
  - Off label use [Unknown]

NARRATIVE: CASE EVENT DATE: 20210524
